FAERS Safety Report 5979478-8 (Version None)
Quarter: 2008Q4

REPORT INFORMATION
  Report Type: 
  Country: None (occurrence: None)
  Receive Date: 20081204
  Receipt Date: 20081125
  Transmission Date: 20090506
  Serious: Yes (Other)
  Sender: FDA-Public Use
  Company Number: US-ELI_LILLY_AND_COMPANY-US200811005997

PATIENT
  Age: 67 Year
  Sex: Female

DRUGS (2)
  1. BYETTA [Suspect]
     Dosage: 5 UG, UNKNOWN
  2. BYETTA [Suspect]
     Dosage: 10 UG, UNKNOWN

REACTIONS (4)
  - ANKLE FRACTURE [None]
  - CONSTIPATION [None]
  - NAUSEA [None]
  - SYNCOPE [None]
